FAERS Safety Report 7916843-3 (Version None)
Quarter: 2011Q4

REPORT INFORMATION
  Report Type: 
  Country: None (occurrence: None)
  Receive Date: 20111116
  Receipt Date: 20111107
  Transmission Date: 20120403
  Serious: Yes (Hospitalization, Other)
  Sender: FDA-Public Use
  Company Number: JP-BRISTOL-MYERS SQUIBB COMPANY-15462245

PATIENT
  Age: 30 Year
  Sex: Female
  Weight: 59 kg

DRUGS (3)
  1. ALOSENN [Concomitant]
     Dates: start: 20081202
  2. ABILIFY [Suspect]
     Dosage: 6 MG:08DEC08-28DEC08.3MG29DEC08-UNK
     Route: 048
     Dates: start: 20081208
  3. RITODRINE HYDROCHLORIDE [Concomitant]
     Dosage: INTERRUPTED ON 12JAN09 AND RESUMED AND THEN DISCONTINUED
     Dates: start: 20081122

REACTIONS (4)
  - THREATENED LABOUR [None]
  - PREGNANCY [None]
  - LIVE BIRTH [None]
  - PREMATURE LABOUR [None]
